FAERS Safety Report 6432310-0 (Version None)
Quarter: 2009Q4

REPORT INFORMATION
  Report Type: 
  Country: None (occurrence: None)
  Receive Date: 20091109
  Receipt Date: 20091026
  Transmission Date: 20100525
  Serious: Yes (Life-Threatening, Hospitalization)
  Sender: FDA-Public Use
  Company Number: FR-ORACLE-2009S1000326

PATIENT
  Age: 61 Year
  Sex: Female
  Weight: 95 kg

DRUGS (25)
  1. CUBICIN [Suspect]
     Indication: DEVICE RELATED INFECTION
     Route: 065
     Dates: start: 20090101, end: 20090101
  2. CUBICIN [Suspect]
     Route: 065
     Dates: start: 20090101, end: 20090101
  3. CUBICIN [Suspect]
     Indication: OFF LABEL USE
     Route: 065
     Dates: start: 20090101, end: 20090101
  4. CUBICIN [Suspect]
     Route: 042
     Dates: start: 20090707, end: 20090713
  5. CUBICIN [Suspect]
     Route: 042
     Dates: start: 20090707, end: 20090713
  6. CUBICIN [Suspect]
     Route: 042
     Dates: start: 20090707, end: 20090713
  7. CUBICIN [Suspect]
     Route: 042
     Dates: start: 20090713, end: 20090715
  8. CUBICIN [Suspect]
     Route: 042
     Dates: start: 20090713, end: 20090715
  9. CUBICIN [Suspect]
     Route: 042
     Dates: start: 20090713, end: 20090715
  10. CUBICIN [Suspect]
     Route: 042
     Dates: start: 20090713, end: 20090715
  11. CUBICIN [Suspect]
     Route: 042
     Dates: start: 20090713, end: 20090715
  12. CUBICIN [Suspect]
     Route: 042
     Dates: start: 20090713, end: 20090715
  13. CUBICIN [Suspect]
     Route: 042
     Dates: start: 20090707, end: 20090713
  14. CUBICIN [Suspect]
     Route: 042
     Dates: start: 20090707, end: 20090713
  15. CUBICIN [Suspect]
     Route: 042
     Dates: start: 20090707, end: 20090713
  16. TIENAM [Suspect]
     Indication: DEVICE RELATED INFECTION
     Dates: start: 20090707, end: 20090711
  17. TIENAM [Suspect]
     Dates: start: 20090711, end: 20090715
  18. CALCIPARINE [Concomitant]
     Indication: DRUG USE FOR UNKNOWN INDICATION
  19. FLUCONAZOLE [Concomitant]
     Indication: DRUG USE FOR UNKNOWN INDICATION
  20. AMIODARONE HCL [Concomitant]
     Indication: DRUG USE FOR UNKNOWN INDICATION
  21. ACETYLSALICYLATE LYSINE [Concomitant]
     Indication: DRUG USE FOR UNKNOWN INDICATION
  22. MOLSIDOMINE [Concomitant]
     Indication: DRUG USE FOR UNKNOWN INDICATION
  23. BISOPROLOL [Concomitant]
     Indication: DRUG USE FOR UNKNOWN INDICATION
  24. ALLOPURINOL [Concomitant]
     Indication: DRUG USE FOR UNKNOWN INDICATION
  25. ESOMEPRAZOLE MAGNESIUM [Concomitant]
     Indication: DRUG USE FOR UNKNOWN INDICATION

REACTIONS (3)
  - HALLUCINATION [None]
  - METABOLIC ACIDOSIS [None]
  - RENAL FAILURE ACUTE [None]
